FAERS Safety Report 9844740 (Version 1)
Quarter: 2014Q1

REPORT INFORMATION
  Report Type: Spontaneous
  Country: US (occurrence: None)
  Receive Date: 20140123
  Receipt Date: 20140123
  Transmission Date: 20141002
  Serious: Yes (Hospitalization)
  Sender: FDA-Public Use
  Company Number: None

PATIENT
  Age: 53 Year
  Sex: Female
  Weight: 66.68 kg

DRUGS (2)
  1. SEROQUEL [Suspect]
     Indication: DEPRESSION
     Route: 048
  2. LAMICTAL [Suspect]
     Indication: DEPRESSION
     Route: 048

REACTIONS (12)
  - Renal failure chronic [None]
  - Depression [None]
  - Suicidal ideation [None]
  - Quality of life decreased [None]
  - Confusional state [None]
  - Asthenia [None]
  - Vision blurred [None]
  - Dyskinesia [None]
  - Vomiting [None]
  - Insomnia [None]
  - Drug withdrawal syndrome [None]
  - Gastrointestinal disorder [None]
